FAERS Safety Report 9386000 (Version 1)
Quarter: 2013Q3

REPORT INFORMATION
  Report Type: Spontaneous
  Country: DE (occurrence: DE)
  Receive Date: 20130705
  Receipt Date: 20130705
  Transmission Date: 20140515
  Serious: Yes (Death, Life-Threatening)
  Sender: FDA-Public Use
  Company Number: DE-ASTRAZENECA-2013SE50607

PATIENT
  Age: 688 Month
  Sex: Male

DRUGS (3)
  1. BRILIQUE [Suspect]
     Indication: ACUTE CORONARY SYNDROME
     Route: 048
  2. BRILIQUE [Suspect]
     Indication: CORONARY ARTERY DISEASE
     Route: 048
  3. ASS [Suspect]
     Route: 048

REACTIONS (2)
  - Cardiac arrest [Fatal]
  - Dyspnoea [Fatal]
